FAERS Safety Report 8186771-X (Version None)
Quarter: 2012Q1

REPORT INFORMATION
  Report Type: 
  Country: None (occurrence: None)
  Receive Date: 20120306
  Receipt Date: 20120306
  Transmission Date: 20120608
  Serious: No
  Sender: FDA-Public Use
  Company Number: None

PATIENT
  Age: 63 Year
  Sex: Female
  Weight: 76.6 kg

DRUGS (4)
  1. ZOSYN [Suspect]
     Indication: PNEUMONIA
     Dosage: 3.375 GM
     Route: 042
     Dates: start: 20120228, end: 20120302
  2. ZOSYN [Suspect]
     Indication: NOSOCOMIAL INFECTION
     Dosage: 3.375 GM
     Route: 042
     Dates: start: 20120228, end: 20120302
  3. VANCOMYCIN [Concomitant]
     Indication: NOSOCOMIAL INFECTION
     Dosage: 750 MG
     Route: 042
     Dates: start: 20120228, end: 20120303
  4. VANCOMYCIN [Concomitant]
     Indication: PNEUMONIA
     Dosage: 750 MG
     Route: 042
     Dates: start: 20120228, end: 20120303

REACTIONS (2)
  - BLOOD CREATININE INCREASED [None]
  - TUBULOINTERSTITIAL NEPHRITIS [None]
